FAERS Safety Report 20181958 (Version 4)
Quarter: 2022Q2

REPORT INFORMATION
  Report Type: Spontaneous
  Country: CA (occurrence: CA)
  Receive Date: 20211214
  Receipt Date: 20220608
  Transmission Date: 20220720
  Serious: Yes (Hospitalization)
  Sender: FDA-Public Use
  Company Number: CA-ELI_LILLY_AND_COMPANY-CA202112002435

PATIENT
  Age: 44 Year
  Sex: Male

DRUGS (14)
  1. DULOXETINE HYDROCHLORIDE [Interacting]
     Active Substance: DULOXETINE HYDROCHLORIDE
     Indication: Neuralgia
     Dosage: UNK UNK, UNKNOWN
     Route: 065
  2. AMITRIPTYLINE [Interacting]
     Active Substance: AMITRIPTYLINE
     Indication: Neuralgia
     Dosage: UNK UNK, UNKNOWN
     Route: 065
  3. CANNABIDIOL [Suspect]
     Active Substance: CANNABIDIOL
     Indication: Neuralgia
     Dosage: UNK, UNKNOWN
     Route: 065
  4. KETAMINE [Interacting]
     Active Substance: KETAMINE
     Indication: Neuralgia
     Dosage: 0.5 MG/KG, UNKNOWN
     Route: 042
  5. KETAMINE [Interacting]
     Active Substance: KETAMINE
     Dosage: 1.6 MG/KG, EVERY HOUR
     Route: 042
  6. KETAMINE [Interacting]
     Active Substance: KETAMINE
     Dosage: 0.5 MG/KG, EVERY HOUR
     Route: 042
  7. TEMAZEPAM [Interacting]
     Active Substance: TEMAZEPAM
     Indication: Neuralgia
     Dosage: UNK UNK, UNKNOWN
     Route: 065
  8. ZOPICLONE [Interacting]
     Active Substance: ZOPICLONE
     Indication: Neuralgia
     Dosage: UNK, UNKNOWN
     Route: 065
  9. DELTA(9)-TETRAHYDROCANNABINOLIC ACID [Suspect]
     Active Substance: DELTA(9)-TETRAHYDROCANNABINOLIC ACID
     Indication: Neuralgia
     Dosage: 0.3 G, WEEKLY (1/W)
     Route: 065
  10. MIDAZOLAM [Interacting]
     Active Substance: MIDAZOLAM
     Indication: Prophylaxis
     Dosage: UNK, DAILY; 1 EVERY 1 DAYS
     Route: 042
  11. ONDANSETRON [Concomitant]
     Active Substance: ONDANSETRON
     Indication: Prophylaxis
     Dosage: UNK UNK, DAILY; 1 EVERY 1 DAYS
     Route: 042
  12. DEXAMETHASONE [Concomitant]
     Active Substance: DEXAMETHASONE
     Indication: Prophylaxis
     Dosage: UNK, DAILY; 1 EVERY 1 DAYS
     Route: 042
  13. LIDOCAINE [Concomitant]
     Active Substance: LIDOCAINE
     Indication: Analgesic therapy
     Dosage: 5.0 MG/KG, UNKNOWN
     Route: 065
  14. MAGNESIUM SULFATE [Concomitant]
     Active Substance: MAGNESIUM SULFATE
     Indication: Analgesic therapy
     Dosage: 50 MG/KG, UNKNOWN
     Route: 065

REACTIONS (6)
  - Behaviour disorder [Recovered/Resolved]
  - Psychotic disorder [Recovered/Resolved]
  - Drug level increased [Unknown]
  - Scar pain [Recovered/Resolved]
  - Drug interaction [Unknown]
  - Hypoaesthesia [Recovered/Resolved]
